APPROVED DRUG PRODUCT: METRONIDAZOLE
Active Ingredient: METRONIDAZOLE
Strength: 0.75%
Dosage Form/Route: GEL;TOPICAL
Application: A077018 | Product #001 | TE Code: AB
Applicant: FOUGERA PHARMACEUTICALS INC
Approved: Jun 6, 2006 | RLD: No | RS: No | Type: RX